FAERS Safety Report 5522591-X (Version None)
Quarter: 2007Q4

REPORT INFORMATION
  Report Type: 
  Country: None (occurrence: None)
  Receive Date: 20071120
  Receipt Date: 20071108
  Transmission Date: 20080405
  Serious: Yes (Life-Threatening)
  Sender: FDA-Public Use
  Company Number: JP-PFIZER INC-2007094601

PATIENT
  Age: 95 Year
  Sex: Female

DRUGS (3)
  1. ZYVOX [Suspect]
     Indication: STAPHYLOCOCCAL SEPSIS
     Route: 042
     Dates: start: 20071103, end: 20071107
  2. PRODIF [Concomitant]
     Indication: FUNGAL INFECTION
     Route: 042
     Dates: start: 20071024, end: 20071026
  3. VANCOMYCIN [Concomitant]
     Indication: STAPHYLOCOCCAL SEPSIS
     Dates: start: 20071026, end: 20071102

REACTIONS (3)
  - DRUG ERUPTION [None]
  - ERYTHEMA [None]
  - WHEEZING [None]
